FAERS Safety Report 8007298-1 (Version None)
Quarter: 2011Q4

REPORT INFORMATION
  Report Type: 
  Country: None (occurrence: None)
  Receive Date: 20111129
  Receipt Date: 20111118
  Transmission Date: 20120403
  Serious: Yes (Death)
  Sender: FDA-Public Use
  Company Number: THYM-1001202

PATIENT
  Age: 74 Year
  Sex: Male
  Weight: 61 kg

DRUGS (19)
  1. SULFAMETHOXAZOLE W (SULFAMETHOXAZOLE, TRIMETHOPRIM) [Concomitant]
  2. TRANEXAMIC ACID [Concomitant]
  3. CHLORPHENIRAMINE MALEATE [Concomitant]
  4. ITRACONAZOLE (ITRAZCONAZOLE) [Concomitant]
  5. LANSOPRAZOLE [Concomitant]
  6. THYMOGLOBULIN [Suspect]
     Indication: APLASTIC ANAEMIA
     Dosage: 200 MG, QD, INTRAVENOUS
     Route: 042
     Dates: start: 20090727, end: 20090731
  7. FUROSEMIDE [Concomitant]
  8. ASCORBIC ACID [Concomitant]
  9. CYCLOSPORINE [Concomitant]
  10. METHYLPREDNISOLONE SODIUM SUCINATE (METHYLPREDNISOLONE SODIUM SUCCINAT [Concomitant]
  11. CEFEPIME HYDROCHLORIDE (FEFEPIME HYDROCHLORIDE) [Concomitant]
  12. HYDROCORTISONE SODIUM SUCCINATE [Concomitant]
  13. METHYLPREDNISOLONE [Concomitant]
  14. TOSUFLOXACIN TOSLIATE (TOSUFLOXACIN TOSILATE) [Concomitant]
  15. ACYCLOVIR [Concomitant]
  16. OLMESARTAN MEDOXOMIL [Concomitant]
  17. CALCIUM PANTOTHENATE (CALCIUM PANTOTHENATE) [Concomitant]
  18. POTASSIUM CHLORIDE [Concomitant]
  19. INSULIN HUMAN (HUMAN GENETICAL RECOMBINATION) (INSULIN HUMAN) [Concomitant]

REACTIONS (7)
  - CARDIAC FAILURE ACUTE [None]
  - MYDRIASIS [None]
  - CONSTIPATION [None]
  - PLATELET DESTRUCTION INCREASED [None]
  - CARDIO-RESPIRATORY ARREST [None]
  - NEUTROPHIL COUNT DECREASED [None]
  - LOSS OF CONSCIOUSNESS [None]
